FAERS Safety Report 9304172 (Version 2)
Quarter: 2013Q2

REPORT INFORMATION
  Report Type: Spontaneous
  Country: US (occurrence: US)
  Receive Date: 20130522
  Receipt Date: 20130627
  Transmission Date: 20140414
  Serious: No
  Sender: FDA-Public Use
  Company Number: US-ASTRAZENECA-2013SE32770

PATIENT
  Age: 70 Year
  Sex: Female
  Weight: 70.8 kg

DRUGS (12)
  1. SYMBICORT [Suspect]
     Indication: CHRONIC OBSTRUCTIVE PULMONARY DISEASE
     Dosage: 160/4.5 MCG TWO PUFFS, BID
     Route: 055
     Dates: start: 201211, end: 20130501
  2. SYMBICORT [Suspect]
     Indication: BRONCHITIS
     Dosage: 160/4.5 MCG TWO PUFFS, BID
     Route: 055
     Dates: start: 201211, end: 20130501
  3. BRILINTA [Suspect]
     Indication: STENT PLACEMENT
     Route: 048
     Dates: start: 201211
  4. BABAY ASPIRIN [Concomitant]
     Indication: CARDIAC DISORDER
  5. LEVOTHYROXINE [Concomitant]
     Indication: THYROID DISORDER
  6. AMYLODIPINE [Concomitant]
     Indication: CARDIAC DISORDER
  7. NITRASTAT [Concomitant]
     Indication: CARDIAC DISORDER
  8. METOPROLOL ER [Concomitant]
     Indication: CARDIAC DISORDER
  9. DESYLAPE [Concomitant]
  10. SPIRIVA [Concomitant]
     Indication: CHRONIC OBSTRUCTIVE PULMONARY DISEASE
  11. RESCUE INHALER [Concomitant]
     Indication: CHRONIC OBSTRUCTIVE PULMONARY DISEASE
  12. ALBUTEROL [Concomitant]

REACTIONS (2)
  - Restless legs syndrome [Unknown]
  - Drug dose omission [Unknown]
